FAERS Safety Report 6543592-9 (Version None)
Quarter: 2010Q1

REPORT INFORMATION
  Report Type: 
  Country: None (occurrence: None)
  Receive Date: 20100120
  Receipt Date: 20100105
  Transmission Date: 20100710
  Serious: Yes (Death)
  Sender: FDA-Public Use
  Company Number: US-TYCO HEALTHCARE/MALLINCKRODT-T201000065

PATIENT
  Age: 51 Year
  Sex: Female

DRUGS (11)
  1. PENNSAID [Suspect]
     Dosage: UNK
     Route: 048
  2. FLUOXETINE [Suspect]
     Dosage: UNK
     Route: 048
  3. BETA-BLOCKER [Suspect]
     Dosage: UNK
     Route: 048
  4. BUPROPION HCL [Suspect]
     Dosage: UNK
     Route: 048
  5. ALPRAZOLAM [Suspect]
     Dosage: UNK
     Route: 048
  6. ENALAPRIL MALEATE [Suspect]
     Dosage: UNK
     Route: 048
  7. ZOLPIDEM [Suspect]
     Dosage: UNK
     Route: 048
  8. CYCLOBENZAPRINE [Suspect]
     Dosage: UNK
     Route: 048
  9. GLIBENCLAMIDE [Suspect]
     Dosage: UNK
     Route: 048
  10. LISINOPRIL [Suspect]
     Dosage: UNK
     Route: 048
  11. LOVASTATIN [Suspect]
     Dosage: UNK
     Route: 048

REACTIONS (2)
  - COMPLETED SUICIDE [None]
  - INCORRECT DOSE ADMINISTERED [None]
